FAERS Safety Report 25149071 (Version 1)
Quarter: 2025Q2

REPORT INFORMATION
  Report Type: Spontaneous
  Country: IN (occurrence: IN)
  Receive Date: 20250402
  Receipt Date: 20250402
  Transmission Date: 20250716
  Serious: Yes (Hospitalization, Other)
  Sender: GLAND PHARMA
  Company Number: IN-GLANDPHARMA-IN-2025GLNLIT00852

PATIENT
  Age: 6 Decade
  Sex: Female

DRUGS (3)
  1. OXALIPLATIN [Suspect]
     Active Substance: OXALIPLATIN
     Indication: Small intestine adenocarcinoma
     Route: 065
  2. FLUOROURACIL [Suspect]
     Active Substance: FLUOROURACIL
     Indication: Small intestine adenocarcinoma
     Route: 065
  3. LEUCOVORIN [Suspect]
     Active Substance: LEUCOVORIN\LEUCOVORIN CALCIUM
     Indication: Small intestine adenocarcinoma
     Route: 065

REACTIONS (10)
  - Metabolic alkalosis [Recovering/Resolving]
  - Hypomagnesaemia [Recovering/Resolving]
  - Diarrhoea [Recovered/Resolved]
  - Hypokalaemia [Recovered/Resolved]
  - Hypocalcaemia [Recovering/Resolving]
  - Myelosuppression [Recovering/Resolving]
  - Pancytopenia [Recovered/Resolved]
  - Metabolic acidosis [Recovering/Resolving]
  - Fatigue [Recovering/Resolving]
  - Vomiting [Recovering/Resolving]
